FAERS Safety Report 10792320 (Version 2)
Quarter: 2015Q1

REPORT INFORMATION
  Report Type: Spontaneous
  Country: NZ (occurrence: NZ)
  Receive Date: 20150213
  Receipt Date: 20150313
  Transmission Date: 20150721
  Serious: No
  Sender: FDA-Public Use
  Company Number: NZ-JNJFOC-20150121013

PATIENT
  Sex: Female

DRUGS (3)
  1. RISPERIDONE QUICKLETS [Suspect]
     Active Substance: RISPERIDONE
     Indication: SUICIDE ATTEMPT
     Route: 048
     Dates: start: 2015
  2. RISPERIDONE QUICKLETS [Suspect]
     Active Substance: RISPERIDONE
     Indication: CONDITION AGGRAVATED
     Route: 048
     Dates: start: 2015
  3. RISPERIDONE QUICKLETS [Suspect]
     Active Substance: RISPERIDONE
     Indication: SELF INJURIOUS BEHAVIOUR
     Route: 048
     Dates: start: 2015

REACTIONS (3)
  - Product use issue [Unknown]
  - Dysphagia [Unknown]
  - Hallucination, auditory [Unknown]

NARRATIVE: CASE EVENT DATE: 2015
